FAERS Safety Report 10083645 (Version 1)
Quarter: 2014Q2

REPORT INFORMATION
  Report Type: Spontaneous
  Country: DE (occurrence: None)
  Receive Date: 20140415
  Receipt Date: 20140415
  Transmission Date: 20141212
  Serious: Yes (Other)
  Sender: FDA-Public Use
  Company Number: AUR-APL-2014-04283

PATIENT
  Age: 23 Year
  Sex: Female

DRUGS (3)
  1. SERTRALINE [Suspect]
     Indication: BORDERLINE PERSONALITY DISORDER
     Route: 048
     Dates: start: 20120626, end: 20130401
  2. SEROQUEL [Suspect]
     Indication: BORDERLINE PERSONALITY DISORDER
     Route: 048
     Dates: start: 20120626, end: 20130401
  3. INSULIN (INSULIN) [Concomitant]

REACTIONS (4)
  - Gestational diabetes [None]
  - Vacuum extractor delivery [None]
  - Obstructed labour [None]
  - Maternal exposure during pregnancy [None]
